FAERS Safety Report 5961456-6 (Version None)
Quarter: 2008Q4

REPORT INFORMATION
  Report Type: 
  Country: None (occurrence: None)
  Receive Date: 20081119
  Receipt Date: 20081008
  Transmission Date: 20090506
  Serious: Yes (Hospitalization)
  Sender: FDA-Public Use
  Company Number: 15538

PATIENT
  Age: 59 Year
  Sex: Male
  Weight: 91 kg

DRUGS (7)
  1. MORPHINE SULFATE [Suspect]
     Indication: BACK PAIN
     Dosage: 60MG TWICE DAILY ORAL
     Route: 048
  2. METOPROLOL TARTRATE [Concomitant]
  3. LYRICA [Concomitant]
  4. LORTAB (HYDROCODONE APAP) [Concomitant]
  5. DIOVAN [Concomitant]
  6. LEXAPRO [Concomitant]
  7. INDOCIN [Concomitant]

REACTIONS (15)
  - ASTHENIA [None]
  - BLADDER NECK OBSTRUCTION [None]
  - BRADYCARDIA [None]
  - DIZZINESS [None]
  - DYSPNOEA [None]
  - FEELING ABNORMAL [None]
  - HYPOTENSION [None]
  - LOSS OF CONSCIOUSNESS [None]
  - NERVOUSNESS [None]
  - OVERDOSE [None]
  - PALPITATIONS [None]
  - PRESYNCOPE [None]
  - PRODUCT QUALITY ISSUE [None]
  - SICK SINUS SYNDROME [None]
  - SOMNOLENCE [None]
